FAERS Safety Report 19175114 (Version 2)
Quarter: 2021Q3

REPORT INFORMATION
  Report Type: Spontaneous
  Country: US (occurrence: US)
  Receive Date: 20210423
  Receipt Date: 20210916
  Transmission Date: 20211014
  Serious: Yes (Hospitalization, Other)
  Sender: FDA-Public Use
  Company Number: US-AMGEN-USASP2021057033

PATIENT
  Age: 71 Year
  Sex: Female

DRUGS (4)
  1. CITRACAL [CALCIUM CITRATE] [Concomitant]
     Active Substance: CALCIUM CITRATE
  2. LIALDA [Concomitant]
     Active Substance: MESALAMINE
     Indication: COLITIS ULCERATIVE
  3. MESALAMINE. [Concomitant]
     Active Substance: MESALAMINE
     Indication: COLITIS ULCERATIVE
  4. PROLIA [Suspect]
     Active Substance: DENOSUMAB
     Indication: OSTEOPOROSIS
     Dosage: Q6MO
     Route: 065

REACTIONS (10)
  - Pain [Unknown]
  - Femur fracture [Not Recovered/Not Resolved]
  - Bone density decreased [Unknown]
  - Hip fracture [Unknown]
  - Fall [Unknown]
  - Pruritus [Unknown]
  - Breast cancer female [Unknown]
  - Blister rupture [Unknown]
  - Ligament sprain [Unknown]
  - Therapy non-responder [Unknown]

NARRATIVE: CASE EVENT DATE: 2019
